FAERS Safety Report 19332765 (Version 1)
Quarter: 2021Q2

REPORT INFORMATION
  Report Type: Spontaneous
  Country: US (occurrence: US)
  Receive Date: 20210529
  Receipt Date: 20210529
  Transmission Date: 20210717
  Serious: Yes (Hospitalization, Other)
  Sender: FDA-Public Use
  Company Number: US-MSNLABS-2021MSNLIT00144

PATIENT

DRUGS (6)
  1. ROSUVASTATIN TABLETS 20 MG [Suspect]
     Active Substance: ROSUVASTATIN
  2. ROSUVASTATIN TABLETS 20 MG [Suspect]
     Active Substance: ROSUVASTATIN
  3. TENOFOVIR [Concomitant]
     Active Substance: TENOFOVIR
     Indication: PROPHYLAXIS AGAINST HIV INFECTION
     Route: 065
  4. ROSUVASTATIN TABLETS 20 MG [Suspect]
     Active Substance: ROSUVASTATIN
     Indication: HYPERLIPIDAEMIA
     Route: 065
  5. EMTRICITABINE [Concomitant]
     Active Substance: EMTRICITABINE
     Indication: PROPHYLAXIS AGAINST HIV INFECTION
     Route: 065
  6. HEPARIN [Interacting]
     Active Substance: HEPARIN SODIUM
     Indication: PRODUCT USED FOR UNKNOWN INDICATION
     Dosage: DRIP
     Route: 065

REACTIONS (2)
  - Acute myocardial infarction [Unknown]
  - Lipoprotein (a) increased [Unknown]
